FAERS Safety Report 6550750-6 (Version None)
Quarter: 2010Q1

REPORT INFORMATION
  Report Type: 
  Country: None (occurrence: None)
  Receive Date: 20100125
  Receipt Date: 20100113
  Transmission Date: 20100710
  Serious: Yes (Hospitalization, Other)
  Sender: FDA-Public Use
  Company Number: PHHY2008JP31584

PATIENT
  Sex: Male
  Weight: 50 kg

DRUGS (11)
  1. DIOVAN [Suspect]
     Indication: HYPERTENSION
     Dosage: 80 MG, QD
     Route: 048
     Dates: start: 20080826, end: 20081203
  2. NOVORAPID [Interacting]
     Indication: DIABETES MELLITUS
     Dosage: 12 DF, UNK
     Route: 058
     Dates: end: 20081127
  3. NOVOLIN R [Interacting]
     Indication: DIABETES MELLITUS
     Dosage: 12 DF, UNK
     Route: 058
     Dates: start: 20081128, end: 20081130
  4. NOVOLIN R [Interacting]
     Dosage: 16 DF, UNK
     Route: 058
     Dates: start: 20081201, end: 20081207
  5. NOVOLIN R [Interacting]
     Dosage: 22 DF, UNK
     Route: 058
     Dates: start: 20081208, end: 20081209
  6. NOVOLIN R [Interacting]
     Dosage: 14 DF, UNK
     Route: 058
     Dates: start: 20081210
  7. ARTIST [Interacting]
     Indication: CARDIAC FAILURE CHRONIC
     Dosage: 5 MG, UNK
     Route: 048
     Dates: start: 20080909, end: 20081125
  8. ARTIST [Interacting]
     Dosage: 2.5 MG, UNK
     Route: 048
     Dates: start: 20081126, end: 20081209
  9. INSULIN [Interacting]
     Dosage: UNK
     Dates: end: 20080401
  10. GASTER D [Concomitant]
     Indication: PROPHYLAXIS AGAINST GASTROINTESTINAL ULCER
     Dosage: 40 MG
     Route: 048
     Dates: end: 20081125
  11. WARFARIN [Concomitant]
     Indication: CEREBRAL INFARCTION
     Dosage: 4 MG
     Route: 048

REACTIONS (9)
  - BLOOD GLUCOSE INCREASED [None]
  - CEREBRAL INFARCTION [None]
  - DIZZINESS [None]
  - DRUG INTERACTION [None]
  - FALL [None]
  - HYPOGLYCAEMIA [None]
  - REHABILITATION THERAPY [None]
  - SUBDURAL HAEMATOMA [None]
  - SURGERY [None]
